FAERS Safety Report 16141033 (Version 2)
Quarter: 2019Q2

REPORT INFORMATION
  Report Type: Spontaneous
  Country: CH (occurrence: CH)
  Receive Date: 20190401
  Receipt Date: 20190408
  Transmission Date: 20190711
  Serious: Yes (Hospitalization, Other)
  Sender: FDA-Public Use
  Company Number: CH-BAXTER-2019BAX006025

PATIENT
  Age: 53 Year
  Sex: Male

DRUGS (6)
  1. MYCOPHENOLATE MOFETIL. [Suspect]
     Active Substance: MYCOPHENOLATE MOFETIL
     Indication: MESENTERITIS
     Dosage: HIGH-DOSE CORTISONE-SAVING THERAPY
     Route: 065
     Dates: start: 2017
  2. AZATHIOPRIN [Suspect]
     Active Substance: AZATHIOPRINE
     Indication: MESENTERITIS
     Route: 065
     Dates: start: 2016
  3. TAMOXIFEN [Suspect]
     Active Substance: TAMOXIFEN
     Indication: MESENTERITIS
     Route: 065
     Dates: start: 2017
  4. ENDOXAN 1 G. TROCKENSUBSTANZ ZUR INTRAVEN?SEN INFUSION [Suspect]
     Active Substance: CYCLOPHOSPHAMIDE
     Indication: MESENTERITIS
     Dosage: PULSE-THERAPY
     Route: 065
     Dates: start: 201901
  5. PREDNISON [Suspect]
     Active Substance: PREDNISONE
     Route: 065
     Dates: start: 201901
  6. PREDNISON [Suspect]
     Active Substance: PREDNISONE
     Indication: MESENTERITIS
     Dosage: DOSES COULD NOT BE REDUCED BELOW 12.5 MG PER DAY AND WERE AT 15 MG PER DAY MOST OF THE TIME
     Route: 065
     Dates: start: 2014

REACTIONS (2)
  - Ileus [Unknown]
  - Drug ineffective [Unknown]

NARRATIVE: CASE EVENT DATE: 201902
